FAERS Safety Report 5748366-4 (Version None)
Quarter: 2008Q2

REPORT INFORMATION
  Report Type: 
  Country: None (occurrence: None)
  Receive Date: 20080520
  Receipt Date: 20080506
  Transmission Date: 20081010
  Serious: Yes (Hospitalization)
  Sender: FDA-Public Use
  Company Number: 230142J08BRA

PATIENT
  Age: 52 Year
  Sex: Female

DRUGS (1)
  1. REBIF [Suspect]
     Dosage: 44 MCG, 3 IN 1 WEEKS;
     Dates: start: 20080301

REACTIONS (1)
  - ANAEMIA [None]
